FAERS Safety Report 10018382 (Version 4)
Quarter: 2014Q2

REPORT INFORMATION
  Report Type: Spontaneous
  Country: US (occurrence: US)
  Receive Date: 20140318
  Receipt Date: 20140423
  Transmission Date: 20141212
  Serious: Yes (Hospitalization, Other)
  Sender: FDA-Public Use
  Company Number: US-009507513-1403USA005208

PATIENT
  Age: 33 Year
  Sex: Male
  Weight: 92.97 kg

DRUGS (13)
  1. PEGINTRON [Suspect]
     Indication: HEPATITIS C
     Dosage: 120 MICROGRAM, QW
     Route: 058
     Dates: start: 20140217
  2. PEGINTRON [Suspect]
     Dosage: 96 MICROGRAM, QW
     Route: 058
     Dates: start: 2014, end: 2014
  3. PEGINTRON [Suspect]
     Dosage: 150 MICROGRAM, QW
     Route: 058
     Dates: start: 2014
  4. REBETOL [Suspect]
     Indication: HEPATITIS C
     Dosage: TOTAL DAILY DOSE: 1200 (UNIT UNSPECIFIED)
     Route: 048
     Dates: start: 20140217
  5. RIBAPAK [Suspect]
     Dosage: 600/DAY
     Route: 048
  6. SOVALDI [Concomitant]
     Indication: HEPATITIS C
     Dosage: TOTAL DAILY DOSE: 400 (UNITS UNSPECIFIED)
     Route: 048
     Dates: start: 20140217
  7. MORPHINE SULFATE [Concomitant]
     Indication: PAIN
     Dosage: TOTAL DAILY DOSE: 60 (UNITS UNSPECIFIED)
     Route: 048
  8. SERAX [Concomitant]
     Indication: ANXIETY
     Dosage: TOTAL DAILY DOSE: 45 MG
     Route: 048
  9. ZYPREXA [Concomitant]
     Indication: BIPOLAR II DISORDER
     Dosage: TOTAL DAILY DOSE: 7.5 MG
     Route: 048
  10. PROZAC [Concomitant]
     Indication: DEPRESSION
     Dosage: 40 MG DAILY
     Route: 048
  11. TRAZODONE HYDROCHLORIDE [Concomitant]
     Indication: SLEEP DISORDER
     Dosage: 15 MG, QPM
     Route: 048
  12. ZOFRAN [Concomitant]
     Route: 048
  13. ANTIVERT (MECLIZINE HYDROCHLORIDE) [Concomitant]
     Route: 048

REACTIONS (12)
  - Suicidal ideation [Unknown]
  - Suicidal ideation [Not Recovered/Not Resolved]
  - Leukopenia [Unknown]
  - Thrombocytopenia [Unknown]
  - Fatigue [Not Recovered/Not Resolved]
  - Depression [Not Recovered/Not Resolved]
  - Nausea [Not Recovered/Not Resolved]
  - Depression [Unknown]
  - Injection site pruritus [Unknown]
  - Injection site rash [Unknown]
  - Headache [Unknown]
  - Anaemia [Unknown]
